FAERS Safety Report 25118817 (Version 1)
Quarter: 2025Q1

REPORT INFORMATION
  Report Type: Spontaneous
  Country: US (occurrence: None)
  Receive Date: 20250325
  Receipt Date: 20250325
  Transmission Date: 20250409
  Serious: Yes (Other)
  Sender: FDA-CTU
  Company Number: None

PATIENT
  Sex: Female

DRUGS (1)
  1. MIRENA [Suspect]
     Active Substance: LEVONORGESTREL
     Indication: Contraception

REACTIONS (5)
  - Headache [None]
  - Fatigue [None]
  - Mood swings [None]
  - Nervousness [None]
  - Anger [None]

NARRATIVE: CASE EVENT DATE: 20250101
